FAERS Safety Report 16664088 (Version 1)
Quarter: 2019Q3

REPORT INFORMATION
  Report Type: Spontaneous
  Country: US (occurrence: US)
  Receive Date: 20190802
  Receipt Date: 20190802
  Transmission Date: 20191004
  Serious: No
  Sender: FDA-Public Use
  Company Number: US-BAUSCH-BL-2019-020653

PATIENT
  Sex: Male

DRUGS (1)
  1. ZIRGAN [Suspect]
     Active Substance: GANCICLOVIR
     Indication: HERPES OPHTHALMIC
     Dosage: ONE DROP INTO THE RIGHT EYE
     Route: 047
     Dates: start: 20190607, end: 20190711

REACTIONS (3)
  - Vitreous floaters [Recovering/Resolving]
  - Eye pain [Recovered/Resolved]
  - Vision blurred [Recovering/Resolving]

NARRATIVE: CASE EVENT DATE: 201907
